FAERS Safety Report 8001980-8 (Version None)
Quarter: 2011Q4

REPORT INFORMATION
  Report Type: 
  Country: None (occurrence: None)
  Receive Date: 20111222
  Receipt Date: 20111213
  Transmission Date: 20120403
  Serious: Yes (Other)
  Sender: FDA-Public Use
  Company Number: JP-ROCHE-1016645

PATIENT
  Sex: Male
  Weight: 61 kg

DRUGS (9)
  1. COPEGUS [Suspect]
     Indication: HEPATIC CIRRHOSIS
     Dosage: DOSAGE IS UNCERTAIN.
     Route: 048
     Dates: start: 20091104
  2. REBETOL [Suspect]
     Dosage: DOSAGE IS UNCERTAIN.
     Route: 048
     Dates: start: 20081021
  3. PEG-INTRON [Suspect]
     Indication: HEPATIC CIRRHOSIS
     Route: 058
     Dates: start: 20081021
  4. REBETOL [Suspect]
     Indication: HEPATIC CIRRHOSIS
     Route: 048
     Dates: start: 20020130
  5. AMLODIPINE [Concomitant]
     Indication: ESSENTIAL HYPERTENSION
     Route: 048
     Dates: start: 20020101
  6. INTRON A [Suspect]
     Indication: HEPATIC CIRRHOSIS
     Route: 030
     Dates: start: 20020130
  7. URSO 250 [Concomitant]
     Indication: HEPATIC CIRRHOSIS
     Route: 048
     Dates: start: 20081021
  8. PEGASYS [Suspect]
     Indication: HEPATIC CIRRHOSIS
     Dosage: DOSAGE IS UNCERTAIN.
     Route: 058
     Dates: start: 20091114
  9. LEVOTHYROXINE SODIUM [Concomitant]
     Indication: HYPOTHYROIDISM
     Route: 048
     Dates: start: 19930101

REACTIONS (2)
  - LYMPHOMA [None]
  - POLYGLANDULAR AUTOIMMUNE SYNDROME TYPE II [None]
